FAERS Safety Report 11688638 (Version 1)
Quarter: 2015Q4

REPORT INFORMATION
  Report Type: Spontaneous
  Country: KR (occurrence: KR)
  Receive Date: 20151102
  Receipt Date: 20151102
  Transmission Date: 20160304
  Serious: Yes (Hospitalization)
  Sender: FDA-Public Use
  Company Number: KR-AMGEN-KORCT2015114937

PATIENT
  Age: 56 Year
  Sex: Female
  Weight: 78.2 kg

DRUGS (25)
  1. DOCETAXEL. [Concomitant]
     Active Substance: DOCETAXEL
     Dosage: 140.25 MG, UNK
     Route: 042
     Dates: start: 20150529, end: 20150529
  2. DOXORUBICIN [Concomitant]
     Active Substance: DOXORUBICIN
     Dosage: 93.5 MG, UNK
     Route: 042
     Dates: start: 20150619, end: 20150619
  3. CYCLOPHOSPHAMIDE. [Concomitant]
     Active Substance: CYCLOPHOSPHAMIDE
     Dosage: 935 MG, UNK
     Route: 042
     Dates: start: 20150619, end: 20150619
  4. TORSEM [Concomitant]
     Dosage: 5 MG, UNK
     Route: 048
     Dates: start: 20150529
  5. DOCETAXEL. [Concomitant]
     Active Substance: DOCETAXEL
     Dosage: 121 MG, UNK
     Route: 042
     Dates: start: 20150729, end: 20150729
  6. LIPEWIN [Concomitant]
     Dosage: 10 MG, UNK
     Route: 048
     Dates: start: 20150529
  7. CYCIN                              /00697202/ [Concomitant]
     Dosage: 500 MG, UNK
     Route: 048
     Dates: start: 20150625, end: 20150701
  8. SOLETON [Concomitant]
     Active Substance: ZALTOPROFEN
     Dosage: 80 MG, UNK
     Route: 048
     Dates: start: 20150729, end: 20150804
  9. LEGALON [Concomitant]
     Active Substance: MILK THISTLE
     Dosage: 140 MG, UNK
     Route: 048
     Dates: start: 20150709, end: 20150820
  10. G-LASTA [Suspect]
     Active Substance: PEGFILGRASTIM
     Dosage: 6 MG, 1X/3WEEKS
     Route: 058
     Dates: start: 20150620, end: 20150620
  11. G-LASTA [Suspect]
     Active Substance: PEGFILGRASTIM
     Dosage: 6 MG, 1X/3WEEKS
     Route: 058
     Dates: start: 20150730, end: 20150730
  12. CYCLOPHOSPHAMIDE. [Concomitant]
     Active Substance: CYCLOPHOSPHAMIDE
     Dosage: 800 MG, UNK
     Route: 042
     Dates: start: 20150729, end: 20150729
  13. MESEXIN [Concomitant]
     Dosage: 500 MG, UNK
     Route: 048
     Dates: start: 20150729, end: 20150804
  14. GABAPENTIN. [Concomitant]
     Active Substance: GABAPENTIN
     Dosage: 100 MG, UNK
     Route: 048
     Dates: start: 20150529
  15. CEFECIN [Concomitant]
     Dosage: 500 MG, UNK
     Route: 048
     Dates: start: 20150623, end: 20150629
  16. TATHION [Concomitant]
     Dosage: 100 MG, UNK
     Route: 042
     Dates: start: 20150728, end: 20150729
  17. DOXORUBICIN [Concomitant]
     Active Substance: DOXORUBICIN
     Dosage: 93.5 MG, UNK
     Route: 042
     Dates: start: 20150529, end: 20150529
  18. DOXORUBICIN [Concomitant]
     Active Substance: DOXORUBICIN
     Dosage: 80 MG, UNK
     Route: 042
     Dates: start: 20150729, end: 20150729
  19. CYCLOPHOSPHAMIDE. [Concomitant]
     Active Substance: CYCLOPHOSPHAMIDE
     Dosage: 935 MG, UNK
     Route: 042
     Dates: start: 20150529, end: 20150529
  20. STAZOL                             /00418502/ [Concomitant]
     Dosage: 50 MG, UNK
     Route: 048
     Dates: start: 20150529
  21. XCOMBI [Concomitant]
     Dosage: 5/80MG
     Route: 048
     Dates: start: 20150529
  22. G-LASTA [Suspect]
     Active Substance: PEGFILGRASTIM
     Indication: FEBRILE NEUTROPENIA
     Dosage: 6 MG, 1X/3WEEKS
     Route: 058
     Dates: start: 20150530, end: 20150530
  23. DOCETAXEL. [Concomitant]
     Active Substance: DOCETAXEL
     Dosage: 140.25 MG, UNK
     Route: 042
     Dates: start: 20150619, end: 20150619
  24. SOLETON [Concomitant]
     Active Substance: ZALTOPROFEN
     Dosage: 80 MG, UNK
     Route: 048
     Dates: start: 20150623, end: 20150627
  25. URSA [Concomitant]
     Dosage: 100 MG, UNK
     Route: 048
     Dates: start: 20150709, end: 20150820

REACTIONS (1)
  - Infusion site infection [Recovered/Resolved]

NARRATIVE: CASE EVENT DATE: 20150811
